FAERS Safety Report 12394654 (Version 1)
Quarter: 2016Q2

REPORT INFORMATION
  Report Type: Spontaneous
  Country: US (occurrence: US)
  Receive Date: 20160523
  Receipt Date: 20160523
  Transmission Date: 20160815
  Serious: Yes (Hospitalization)
  Sender: FDA-Public Use
  Company Number: US-SMITH AND NEPHEW, INC-2016SMT00433

PATIENT
  Age: 46 Year
  Sex: Male
  Weight: 71.2 kg

DRUGS (4)
  1. REGRANEX [Suspect]
     Active Substance: BECAPLERMIN
     Indication: ULCER
     Dosage: UNK, 1X/DAY
     Route: 061
     Dates: start: 2016, end: 2016
  2. LISINOPRIL. [Concomitant]
     Active Substance: LISINOPRIL
  3. UNSPECIFIED EYE DROPS [Concomitant]
     Active Substance: UNSPECIFIED INGREDIENT
  4. UNSPECIFIED INSULIN [Concomitant]
     Active Substance: INSULIN NOS

REACTIONS (1)
  - Bone operation [Recovering/Resolving]

NARRATIVE: CASE EVENT DATE: 20160406
